FAERS Safety Report 13807185 (Version 3)
Quarter: 2018Q1

REPORT INFORMATION
  Report Type: Report from Study
  Country: US (occurrence: US)
  Receive Date: 20170728
  Receipt Date: 20180125
  Transmission Date: 20180508
  Serious: No
  Sender: FDA-Public Use
  Company Number: US-AMGEN-USASL2017084293

PATIENT
  Age: 70 Year
  Sex: Male
  Weight: 89.34 kg

DRUGS (2)
  1. REPATHA [Suspect]
     Active Substance: EVOLOCUMAB
     Indication: HYPERCHOLESTEROLAEMIA
  2. REPATHA [Suspect]
     Active Substance: EVOLOCUMAB
     Indication: BLOOD CHOLESTEROL INCREASED
     Dosage: 140 MG, Q2WK
     Route: 058

REACTIONS (7)
  - Blood urea nitrogen/creatinine ratio increased [Unknown]
  - Blood alkaline phosphatase decreased [Unknown]
  - Blood albumin decreased [Unknown]
  - Blood glucose increased [Unknown]
  - Rash [Unknown]
  - Blood urea increased [Unknown]
  - Rash macular [Unknown]

NARRATIVE: CASE EVENT DATE: 20170626
